FAERS Safety Report 9702963 (Version 1)
Quarter: 2013Q4

REPORT INFORMATION
  Report Type: Report from Study
  Country: US (occurrence: US)
  Receive Date: 20131122
  Receipt Date: 20131122
  Transmission Date: 20140711
  Serious: Yes (Other)
  Sender: FDA-Public Use
  Company Number: US-ROCHE-1303267

PATIENT
  Age: 16 Year
  Sex: Male
  Weight: 60.5 kg

DRUGS (2)
  1. NUTROPIN AQ [Suspect]
     Indication: GROWTH HORMONE DEFICIENCY
     Route: 058
     Dates: end: 20131031
  2. NUTROPIN AQ [Suspect]
     Route: 058
     Dates: start: 20131031

REACTIONS (1)
  - Growth retardation [Unknown]
